FAERS Safety Report 6250745-6 (Version None)
Quarter: 2009Q2

REPORT INFORMATION
  Report Type: 
  Country: None (occurrence: None)
  Receive Date: 20090630
  Receipt Date: 20080828
  Transmission Date: 20091009
  Serious: No
  Sender: FDA-Public Use
  Company Number: US-ABBOTT-08P-163-0473118-00

PATIENT
  Sex: Female
  Weight: 69.916 kg

DRUGS (1)
  1. ZEMPLAR [Suspect]
     Indication: VITAMIN D DEFICIENCY
     Route: 048
     Dates: start: 20080523, end: 20080701

REACTIONS (1)
  - HEART RATE INCREASED [None]
